FAERS Safety Report 13354017 (Version 3)
Quarter: 2022Q1

REPORT INFORMATION
  Report Type: Other
  Country: US (occurrence: None)
  Receive Date: 20170321
  Receipt Date: 20220322
  Transmission Date: 20220423
  Serious: Yes (Hospitalization)
  Sender: FDA-Public Use
  Company Number: US-ROCHE-1908107

PATIENT
  Sex: Female
  Weight: 123.03 kg

DRUGS (29)
  1. XOLAIR [Suspect]
     Active Substance: OMALIZUMAB
     Indication: Idiopathic urticaria
     Dosage: LAST INJECTION: 13/FEB/2017
     Route: 058
  2. ALBUTEROL SULFATE [Concomitant]
     Active Substance: ALBUTEROL SULFATE
     Dosage: INHALE 2 PUFFS IN LUNGS
  3. ALBUTEROL [Concomitant]
     Active Substance: ALBUTEROL
     Dosage: 2.5MMG/3 ML, BY NEBULISATION
  4. ALPRAZOLAM [Concomitant]
     Active Substance: ALPRAZOLAM
  5. AZELASTINE [Concomitant]
     Active Substance: AZELASTINE
  6. BENLYSTA [Concomitant]
     Active Substance: BELIMUMAB
  7. FIORICET [Concomitant]
     Active Substance: ACETAMINOPHEN\BUTALBITAL\CAFFEINE
     Dosage: 1-2 TABLETS
  8. YASMIN [Concomitant]
     Active Substance: DROSPIRENONE\ETHINYL ESTRADIOL
     Dosage: 1 TABLET DAILY
  9. DULERA [Concomitant]
     Active Substance: FORMOTEROL FUMARATE DIHYDRATE\MOMETASONE FUROATE
  10. EPINEPHRINE [Concomitant]
     Active Substance: EPINEPHRINE
  11. NEXIUM [Concomitant]
     Active Substance: ESOMEPRAZOLE MAGNESIUM
  12. LIDEX [Concomitant]
     Active Substance: FLUOCINONIDE
  13. FLUOXETINE [Concomitant]
     Active Substance: FLUOXETINE HYDROCHLORIDE
  14. NORCO [Concomitant]
     Active Substance: ACETAMINOPHEN\HYDROCODONE BITARTRATE
  15. PLAQUENIL [Concomitant]
     Active Substance: HYDROXYCHLOROQUINE SULFATE
  16. VISTARIL [Concomitant]
     Active Substance: HYDROXYZINE PAMOATE
  17. ATROVENT [Concomitant]
     Active Substance: IPRATROPIUM BROMIDE
  18. ZADITOR [Concomitant]
     Active Substance: KETOTIFEN FUMARATE
     Dosage: OPTHALMIC SOLUTION
  19. ZADITOR [Concomitant]
     Active Substance: KETOTIFEN FUMARATE
     Dosage: OPTHALMIC SOLUTION 0.025% (0.035 %)
     Dates: start: 20161031
  20. VYVANSE [Concomitant]
     Active Substance: LISDEXAMFETAMINE DIMESYLATE
  21. SINGULAIR [Concomitant]
     Active Substance: MONTELUKAST SODIUM
  22. LEVOMEFOLIC ACID\METHYLCOBALAMIN\TURMERIC [Concomitant]
     Active Substance: LEVOMEFOLIC ACID\METHYLCOBALAMIN\TURMERIC
  23. MAXALT-MLT [Concomitant]
     Active Substance: RIZATRIPTAN BENZOATE
  24. ARMOUR THYROID [Concomitant]
     Active Substance: THYROID, PORCINE
  25. ZANAFLEX [Concomitant]
     Active Substance: TIZANIDINE HYDROCHLORIDE
  26. VITAMIN D3 [Concomitant]
     Active Substance: CHOLECALCIFEROL
  27. EPIPEN [Concomitant]
     Active Substance: EPINEPHRINE
  28. BENADRYL [Concomitant]
     Active Substance: DIPHENHYDRAMINE HYDROCHLORIDE
     Route: 042
  29. BENADRYL [Concomitant]
     Active Substance: DIPHENHYDRAMINE HYDROCHLORIDE
     Route: 042

REACTIONS (2)
  - Anaphylactic reaction [Unknown]
  - Cutaneous lupus erythematosus [Unknown]
